FAERS Safety Report 4527267-3 (Version None)
Quarter: 2004Q4

REPORT INFORMATION
  Report Type: 
  Country: None (occurrence: None)
  Receive Date: 20041130
  Receipt Date: 20040826
  Transmission Date: 20050328
  Serious: No
  Sender: FDA-Public Use
  Company Number: FABR-10755

PATIENT
  Age: 38 Year
  Sex: Male
  Weight: 73 kg

DRUGS (4)
  1. FABRAZYME [Suspect]
     Indication: FABRY'S DISEASE
     Dosage: 70 MG Q2WKS IV
     Route: 042
     Dates: start: 20040406
  2. CARDIPRIN [Concomitant]
  3. TYLENOL (CAPLET) [Concomitant]
  4. LORATADINE [Concomitant]

REACTIONS (5)
  - BODY TEMPERATURE INCREASED [None]
  - CHILLS [None]
  - DIARRHOEA [None]
  - FEELING COLD [None]
  - PALLOR [None]
